FAERS Safety Report 9216905 (Version 1)
Quarter: 2013Q2

REPORT INFORMATION
  Report Type: Spontaneous
  Country: US (occurrence: None)
  Receive Date: 20130403
  Receipt Date: 20130403
  Transmission Date: 20140414
  Serious: Yes (Other)
  Sender: FDA-Public Use
  Company Number: DSU-2013-00906

PATIENT
  Age: 73 Year
  Sex: Female

DRUGS (2)
  1. TRIBENZOR [Suspect]
     Indication: HYPERTENSION
     Route: 048
     Dates: start: 20121205, end: 20130127
  2. CELEBREX [Concomitant]

REACTIONS (2)
  - Spondyloarthropathy [None]
  - Osteoarthritis [None]
